FAERS Safety Report 25983372 (Version 1)
Quarter: 2025Q4

REPORT INFORMATION
  Report Type: Spontaneous
  Country: US (occurrence: None)
  Receive Date: 20251030
  Receipt Date: 20251030
  Transmission Date: 20260118
  Serious: Yes (Hospitalization)
  Sender: FDA-CTU
  Company Number: None

PATIENT
  Sex: Female

DRUGS (4)
  1. FORTEO [Suspect]
     Active Substance: TERIPARATIDE
     Indication: Osteoporosis
     Dosage: OTHER STRENGTH : 560 MCG/2.24ML;?FREQUENCY : DAILY;?
     Route: 042
     Dates: start: 20241231
  2. LEVOFLOXACIN [Concomitant]
     Active Substance: LEVOFLOXACIN
  3. LINZESS [Concomitant]
     Active Substance: LINACLOTIDE
  4. METRONIDAZOLE [Concomitant]
     Active Substance: METRONIDAZOLE

REACTIONS (1)
  - Hospitalisation [None]
